FAERS Safety Report 7251136-1 (Version None)
Quarter: 2011Q1

REPORT INFORMATION
  Report Type: 
  Country: None (occurrence: None)
  Receive Date: 20110119
  Receipt Date: 20110105
  Transmission Date: 20110831
  Serious: No
  Sender: FDA-Public Use
  Company Number: DSJ-2010-18951

PATIENT
  Age: 67 Year
  Sex: Male
  Weight: 67.3 kg

DRUGS (6)
  1. ZETIA [Concomitant]
  2. FASTIC (NATEGLINIDE) (NATEGLINIDE) [Concomitant]
  3. OLMESARTAN MEDOXOMIL [Suspect]
     Indication: ESSENTIAL HYPERTENSION
     Dosage: (5 MG, PER ORAL) (10 MG, PER ORAL)
     Route: 048
     Dates: start: 20100916, end: 20101002
  4. OLMESARTAN MEDOXOMIL [Suspect]
     Indication: ESSENTIAL HYPERTENSION
     Dosage: (5 MG, PER ORAL) (10 MG, PER ORAL)
     Route: 048
     Dates: start: 20100702, end: 20100915
  5. CRESTOR [Concomitant]
  6. MEDET (METFORMIN HYDROCHLORIDE) (METFORMIN HYDROCHLORIDE) [Concomitant]

REACTIONS (1)
  - BLOOD PRESSURE INCREASED [None]
